FAERS Safety Report 9808197 (Version 3)
Quarter: 2014Q2

REPORT INFORMATION
  Report Type: Spontaneous
  Country: JP (occurrence: JP)
  Receive Date: 20140110
  Receipt Date: 20140421
  Transmission Date: 20141212
  Serious: Yes (Death, Other)
  Sender: FDA-Public Use
  Company Number: JP-MALLINCKRODT-T201304635

PATIENT
  Age: 53 Year
  Sex: Male

DRUGS (11)
  1. METHADONE [Suspect]
     Indication: CANCER PAIN
     Dosage: 10 MG (30 MG DAILY DOSE)
     Route: 048
     Dates: start: 20131003, end: 20131003
  2. METHADONE [Suspect]
     Dosage: 10 MG (20 MG DAILY DOSE)
     Route: 048
     Dates: start: 20131004, end: 20131012
  3. METHADONE [Suspect]
     Dosage: 30 MG (30 MG DAILY DOSE)
     Route: 048
     Dates: start: 20131013, end: 20131016
  4. OXYFAST [Suspect]
     Indication: PRODUCT USED FOR UNKNOWN INDICATION
     Route: 051
  5. CLINORIL [Concomitant]
     Indication: PRODUCT USED FOR UNKNOWN INDICATION
     Dosage: 200 MG, UNK
     Route: 048
     Dates: start: 20130925, end: 20131015
  6. SELBEX [Concomitant]
     Indication: PRODUCT USED FOR UNKNOWN INDICATION
     Dosage: 150 MG, UNK
     Route: 048
     Dates: start: 20130315, end: 20131015
  7. TAKEPRON [Concomitant]
     Indication: PRODUCT USED FOR UNKNOWN INDICATION
     Dosage: 15 MG, UNK
     Route: 048
     Dates: start: 20130319, end: 20131015
  8. METHYCOBAL [Concomitant]
     Indication: PRODUCT USED FOR UNKNOWN INDICATION
     Dosage: 1500 ?G, UNK
     Route: 048
     Dates: start: 20130616, end: 20131015
  9. DECADRON [Concomitant]
     Indication: PRODUCT USED FOR UNKNOWN INDICATION
     Dosage: 2.0 MG, UNK
     Route: 048
     Dates: start: 20130711, end: 20131015
  10. ZOSYN [Concomitant]
     Indication: PRODUCT USED FOR UNKNOWN INDICATION
     Dosage: 13.5 MG, UNK
     Route: 051
     Dates: start: 20131004, end: 20131009
  11. NEUROTROPIN [Concomitant]
     Indication: PRODUCT USED FOR UNKNOWN INDICATION
     Dosage: 3.6 IU, UNK
     Route: 051
     Dates: start: 20130819, end: 20131015

REACTIONS (5)
  - Disease progression [Fatal]
  - Electrocardiogram QT prolonged [Recovered/Resolved]
  - Sinus tachycardia [Recovered/Resolved]
  - Enterocolitis bacterial [Recovering/Resolving]
  - Dehydration [Unknown]
